FAERS Safety Report 16777150 (Version 2)
Quarter: 2019Q3

REPORT INFORMATION
  Report Type: Report from Study
  Country: US (occurrence: US)
  Receive Date: 20190905
  Receipt Date: 20190906
  Transmission Date: 20191005
  Serious: No
  Sender: FDA-Public Use
  Company Number: US-EMD SERONO-9099422

PATIENT
  Age: 49 Year
  Sex: Female

DRUGS (1)
  1. MAVENCLAD [Suspect]
     Active Substance: CLADRIBINE
     Indication: MULTIPLE SCLEROSIS
     Dosage: FIRST WEEK THERAPY: 2 TABLETS ON DAYS 1 AND 2 AND 1 TABLET ON DAYS 3, 4 AND 5.
     Route: 048
     Dates: start: 20190618, end: 20190622

REACTIONS (12)
  - Nausea [Not Recovered/Not Resolved]
  - Headache [Not Recovered/Not Resolved]
  - Abdominal discomfort [Not Recovered/Not Resolved]
  - Fatigue [Not Recovered/Not Resolved]
  - Oral herpes [Recovering/Resolving]
  - Hypoaesthesia [Recovered/Resolved]
  - Influenza like illness [Not Recovered/Not Resolved]
  - Throat tightness [Recovering/Resolving]
  - Fungal infection [Recovering/Resolving]
  - Chills [Not Recovered/Not Resolved]
  - Muscle tightness [Recovering/Resolving]
  - Paraesthesia [Recovering/Resolving]

NARRATIVE: CASE EVENT DATE: 201906
